FAERS Safety Report 25501062 (Version 2)
Quarter: 2025Q3

REPORT INFORMATION
  Report Type: Report from Study
  Country: JP (occurrence: JP)
  Receive Date: 20250701
  Receipt Date: 20250708
  Transmission Date: 20251020
  Serious: Yes (Death, Hospitalization, Other)
  Sender: REGENERON
  Company Number: JP-REGENERON PHARMACEUTICALS, INC.-2025-015259

PATIENT
  Age: 54 Year
  Sex: Female

DRUGS (14)
  1. LIBTAYO [Suspect]
     Active Substance: CEMIPLIMAB-RWLC
     Indication: Cervix carcinoma recurrent
     Dates: start: 20241219, end: 20241219
  2. LIBTAYO [Suspect]
     Active Substance: CEMIPLIMAB-RWLC
     Dates: start: 20250207, end: 20250207
  3. ACETAMINOPHEN\TRAMADOL HYDROCHLORIDE [Concomitant]
     Active Substance: ACETAMINOPHEN\TRAMADOL HYDROCHLORIDE
     Indication: Product used for unknown indication
     Dosage: 25 MG, 4T/DAY
     Route: 048
  4. METHYLCOBALAMIN [Concomitant]
     Active Substance: METHYLCOBALAMIN
     Indication: Product used for unknown indication
     Dosage: 500 MICROGRAM, 2T/DAY
     Route: 048
  5. BISOPROLOL FUMARATE [Concomitant]
     Active Substance: BISOPROLOL FUMARATE
     Indication: Product used for unknown indication
     Dosage: 2.5 MG, QD
     Route: 048
  6. VALSARTAN [Concomitant]
     Active Substance: VALSARTAN
     Indication: Product used for unknown indication
     Dosage: 40 MG, QD
     Route: 048
  7. LANSOPRAZOLE [Concomitant]
     Active Substance: LANSOPRAZOLE
     Indication: Product used for unknown indication
     Dosage: 15 MG, QD
     Route: 048
  8. HERBALS [Concomitant]
     Active Substance: HERBALS
     Indication: Product used for unknown indication
     Route: 048
  9. MAGNESIUM OXIDE [Concomitant]
     Active Substance: MAGNESIUM OXIDE
     Indication: Product used for unknown indication
     Dosage: 4T/DAY
     Route: 048
  10. FEXOFENADINA [FEXOFENADINE HYDROCHLORIDE] [Concomitant]
     Indication: Product used for unknown indication
     Dosage: 60 MG, 2T/DAY
     Route: 048
  11. PREGABALIN [Concomitant]
     Active Substance: PREGABALIN
     Indication: Product used for unknown indication
     Route: 048
  12. PREGABALIN [Concomitant]
     Active Substance: PREGABALIN
     Route: 048
  13. LOXOPROFEN SODIUM DIHYDRATE [Concomitant]
     Active Substance: LOXOPROFEN SODIUM DIHYDRATE
     Indication: Product used for unknown indication
     Dosage: 60 MG, 3T/DAY
     Route: 048
  14. REBAMIPIDE [Concomitant]
     Active Substance: REBAMIPIDE
     Indication: Product used for unknown indication
     Dosage: 100 MG, 3T/DAY
     Route: 048

REACTIONS (2)
  - Herpes zoster [Recovered/Resolved]
  - Disease progression [Fatal]

NARRATIVE: CASE EVENT DATE: 20241222
